FAERS Safety Report 7554824-2 (Version None)
Quarter: 2011Q2

REPORT INFORMATION
  Report Type: 
  Country: None (occurrence: None)
  Receive Date: 20110615
  Receipt Date: 20110615
  Transmission Date: 20111010
  Serious: Yes (Hospitalization)
  Sender: FDA-Public Use
  Company Number: None

PATIENT
  Sex: Female
  Weight: 117.1 kg

DRUGS (3)
  1. NEULASTA [Suspect]
     Dosage: 6 MG
  2. TAXOL [Suspect]
     Dosage: 350 MG
  3. CARBOPLATIN [Suspect]
     Dosage: 357 MG

REACTIONS (3)
  - PSEUDOMONAS INFECTION [None]
  - FEBRILE NEUTROPENIA [None]
  - BLOOD CULTURE POSITIVE [None]
